FAERS Safety Report 5932867-X (Version None)
Quarter: 2008Q4

REPORT INFORMATION
  Report Type: 
  Country: None (occurrence: None)
  Receive Date: 20081027
  Receipt Date: 20081027
  Transmission Date: 20090506
  Serious: Yes (Other)
  Sender: FDA-Public Use
  Company Number: None

PATIENT
  Sex: Male
  Weight: 67 kg

DRUGS (2)
  1. ALEMTUZUMAB [Suspect]
     Indication: GRAFT VERSUS HOST DISEASE
     Dosage: 30 MG ONCE IV
     Route: 042
  2. ALEMTUZUMAB [Suspect]
     Indication: LYMPHOMA
     Dosage: 30 MG ONCE IV
     Route: 042

REACTIONS (4)
  - DYSPNOEA [None]
  - METABOLIC ALKALOSIS [None]
  - OXYGEN SATURATION DECREASED [None]
  - RESPIRATORY RATE INCREASED [None]
